FAERS Safety Report 7411214-0 (Version None)
Quarter: 2011Q2

REPORT INFORMATION
  Report Type: 
  Country: None (occurrence: None)
  Receive Date: 20110413
  Receipt Date: 20110331
  Transmission Date: 20111010
  Serious: No
  Sender: FDA-Public Use
  Company Number: US-RB-020439-11

PATIENT
  Age: 39 Year
  Sex: Female

DRUGS (1)
  1. SUBOXONE [Suspect]
     Indication: DRUG DEPENDENCE
     Dosage: 2-3 (16 MG) TABLETS A DAY
     Route: 060

REACTIONS (1)
  - NO ADVERSE EVENT [None]
